FAERS Safety Report 22712292 (Version 6)
Quarter: 2023Q4

REPORT INFORMATION
  Report Type: Spontaneous
  Country: US (occurrence: US)
  Receive Date: 20230717
  Receipt Date: 20231109
  Transmission Date: 20240109
  Serious: No
  Sender: FDA-Public Use
  Company Number: US-PFIZER INC-PV202300120771

PATIENT
  Age: 9 Year
  Sex: Male

DRUGS (2)
  1. GENOTROPIN [Suspect]
     Active Substance: SOMATROPIN
     Dosage: ALTERNATE 0.8MG WITH 1MG EVERY DAY
  2. GENOTROPIN [Suspect]
     Active Substance: SOMATROPIN
     Dosage: ALTERNATE 0.8MG WITH 1MG EVERY DAY

REACTIONS (4)
  - Device malfunction [Unknown]
  - Device physical property issue [Unknown]
  - Drug dose omission by device [Unknown]
  - Device difficult to use [Unknown]
